FAERS Safety Report 18504622 (Version 1)
Quarter: 2020Q4

REPORT INFORMATION
  Report Type: Other
  Country: NL (occurrence: NL)
  Receive Date: 20201115
  Receipt Date: 20201115
  Transmission Date: 20210114
  Serious: Yes (Hospitalization)
  Sender: FDA-Public Use
  Company Number: NL-B.BRAUN MEDICAL INC.-2095928

PATIENT

DRUGS (2)
  1. CEFTRIAXONE FOR INJECTION AND DEXTROSE INJECTION 0264-3153-11 (NDA 050 [Suspect]
     Active Substance: CEFTRIAXONE SODIUM
  2. DOXYCYLINE [Concomitant]
     Active Substance: DOXYCYCLINE
     Route: 048

REACTIONS (1)
  - Jarisch-Herxheimer reaction [Recovered/Resolved]
